FAERS Safety Report 15387042 (Version 1)
Quarter: 2018Q3

REPORT INFORMATION
  Report Type: Spontaneous
  Country: US (occurrence: US)
  Receive Date: 20180914
  Receipt Date: 20180914
  Transmission Date: 20181010
  Serious: Yes (Hospitalization, Other)
  Sender: FDA-Public Use
  Company Number: US-AMGEN-USASP2018126186

PATIENT
  Age: 28 Year
  Sex: Female

DRUGS (2)
  1. PARSABIV [Suspect]
     Active Substance: ETELCALCETIDE HYDROCHLORIDE
     Dosage: 15 MG, 3 TIMES/WK
     Route: 065
     Dates: start: 2018, end: 20180904
  2. PARSABIV [Suspect]
     Active Substance: ETELCALCETIDE HYDROCHLORIDE
     Indication: HYPERPARATHYROIDISM SECONDARY
     Dosage: 2.5 MG, 3 TIMES/WK
     Route: 065
     Dates: start: 20180419, end: 2018

REACTIONS (4)
  - Underdose [Unknown]
  - Unevaluable event [Unknown]
  - Hyperkalaemia [Not Recovered/Not Resolved]
  - Hypocalcaemia [Unknown]

NARRATIVE: CASE EVENT DATE: 2018
